FAERS Safety Report 7288836-3 (Version None)
Quarter: 2011Q1

REPORT INFORMATION
  Report Type: 
  Country: None (occurrence: None)
  Receive Date: 20110211
  Receipt Date: 20110201
  Transmission Date: 20110831
  Serious: Yes (Other)
  Sender: FDA-Public Use
  Company Number: US-JNJFOC-20110201029

PATIENT
  Sex: Male
  Weight: 66.68 kg

DRUGS (5)
  1. REMICADE [Suspect]
     Indication: CROHN'S DISEASE
     Route: 042
  2. CALCIUM [Concomitant]
     Indication: MEDICAL DIET
     Route: 048
  3. METHOTREXATE [Suspect]
     Indication: CROHN'S DISEASE
  4. PREDNISONE [Suspect]
     Indication: CROHN'S DISEASE
  5. MULTIVIT [Concomitant]
     Route: 048

REACTIONS (5)
  - WEIGHT INCREASED [None]
  - ABNORMAL LOSS OF WEIGHT [None]
  - HEPATIC ENZYME INCREASED [None]
  - INCREASED APPETITE [None]
  - ENTERITIS [None]
